FAERS Safety Report 10166041 (Version 1)
Quarter: 2014Q2

REPORT INFORMATION
  Report Type: Spontaneous
  Country: US (occurrence: US)
  Receive Date: 20140511
  Receipt Date: 20140511
  Transmission Date: 20141212
  Serious: Yes (Other)
  Sender: FDA-Public Use
  Company Number: US-BRISTOL-MYERS SQUIBB COMPANY-20700019

PATIENT
  Age: 74 Year
  Sex: Female
  Weight: 81.63 kg

DRUGS (4)
  1. BYDUREON [Suspect]
     Indication: TYPE 2 DIABETES MELLITUS
     Dosage: LAST DOSE:2MAY14
  2. METFORMIN HCL TABS 500MG [Concomitant]
     Route: 048
  3. DIOVAN [Concomitant]
     Route: 048
  4. LEVEMIR [Concomitant]
     Route: 058

REACTIONS (3)
  - Hypoaesthesia oral [Not Recovered/Not Resolved]
  - Dizziness [Not Recovered/Not Resolved]
  - Nausea [Not Recovered/Not Resolved]
